FAERS Safety Report 6372463-6 (Version None)
Quarter: 2009Q3

REPORT INFORMATION
  Report Type: 
  Country: None (occurrence: None)
  Receive Date: 20090924
  Receipt Date: 20090313
  Transmission Date: 20100115
  Serious: No
  Sender: FDA-Public Use
  Company Number: US-ASTRAZENECA-2008UW17708

PATIENT
  Age: 26 Year
  Sex: Male
  Weight: 127 kg

DRUGS (8)
  1. SEROQUEL [Suspect]
     Indication: DEPRESSION
     Route: 048
     Dates: start: 20030806
  2. HALDOL [Concomitant]
     Dates: start: 20030501, end: 20060601
  3. DOXEPIN HCL [Concomitant]
     Dates: start: 20030501, end: 20060601
  4. BENZOTROPINE [Concomitant]
     Dates: start: 20030501, end: 20060601
  5. MIRTAZAPINE [Concomitant]
     Dates: start: 20030501, end: 20060601
  6. RISPERDAL [Concomitant]
  7. ABILIFY [Concomitant]
  8. METFORMIN HCL [Concomitant]

REACTIONS (5)
  - ABDOMINAL PAIN UPPER [None]
  - DIABETES MELLITUS [None]
  - MUSCLE SPASMS [None]
  - ROAD TRAFFIC ACCIDENT [None]
  - VOMITING [None]
